FAERS Safety Report 20541338 (Version 1)
Quarter: 2022Q1

REPORT INFORMATION
  Report Type: Spontaneous
  Country: JP (occurrence: JP)
  Receive Date: 20220302
  Receipt Date: 20220302
  Transmission Date: 20220423
  Serious: Yes (Death, Other)
  Sender: FDA-Public Use
  Company Number: JP-MSD-M2022-08069

PATIENT
  Age: 84 Year
  Sex: Male

DRUGS (1)
  1. MOLNUPIRAVIR [Suspect]
     Active Substance: MOLNUPIRAVIR
     Indication: COVID-19 treatment
     Dosage: 800 MILLIGRAM, BID
     Route: 050
     Dates: start: 20220218, end: 20220218

REACTIONS (2)
  - Multiple organ dysfunction syndrome [Fatal]
  - Product use issue [Unknown]

NARRATIVE: CASE EVENT DATE: 20220218
